FAERS Safety Report 6347184-6 (Version None)
Quarter: 2009Q3

REPORT INFORMATION
  Report Type: 
  Country: None (occurrence: None)
  Receive Date: 20090910
  Receipt Date: 20090831
  Transmission Date: 20100115
  Serious: Yes (Hospitalization)
  Sender: FDA-Public Use
  Company Number: PHHY2009FR30761

PATIENT
  Sex: Female
  Weight: 69 kg

DRUGS (1)
  1. ACLASTA [Suspect]
     Indication: OSTEITIS DEFORMANS
     Dosage: 5 MG, UNK
     Route: 042
     Dates: start: 20081204

REACTIONS (14)
  - ABDOMINAL PAIN [None]
  - ANXIETY [None]
  - BLOOD PHOSPHORUS DECREASED [None]
  - C-REACTIVE PROTEIN INCREASED [None]
  - CHEST PAIN [None]
  - CHILLS [None]
  - DYSPNOEA EXERTIONAL [None]
  - FIBRIN D DIMER INCREASED [None]
  - HYPOTENSION [None]
  - MALAISE [None]
  - NAUSEA [None]
  - PALLOR [None]
  - PLATELET COUNT INCREASED [None]
  - WHITE BLOOD CELL COUNT INCREASED [None]
